FAERS Safety Report 8520816-X (Version None)
Quarter: 2012Q3

REPORT INFORMATION
  Report Type: 
  Country: None (occurrence: None)
  Receive Date: 20120719
  Receipt Date: 20120713
  Transmission Date: 20120928
  Serious: Yes (Other)
  Sender: FDA-Public Use
  Company Number: JP-PFIZER INC-2012171130

PATIENT
  Age: 80 Year
  Sex: Male

DRUGS (1)
  1. LYRICA [Suspect]
     Dosage: UNK
     Route: 048
     Dates: end: 20120614

REACTIONS (4)
  - HAEMORRHAGE SUBCUTANEOUS [None]
  - DIZZINESS [None]
  - FALL [None]
  - PYREXIA [None]
